FAERS Safety Report 9382024 (Version 1)
Quarter: 2013Q3

REPORT INFORMATION
  Report Type: Spontaneous
  Country: GB (occurrence: GB)
  Receive Date: 20130703
  Receipt Date: 20130703
  Transmission Date: 20140515
  Serious: Yes (Hospitalization, Other)
  Sender: FDA-Public Use
  Company Number: GB-PFIZER INC-2013191056

PATIENT
  Age: 11 Year
  Sex: Male

DRUGS (19)
  1. DOXORUBICIN HCL [Suspect]
     Indication: NEOPLASM MALIGNANT
     Dosage: 42 MG, EVERY 3 WEEKS (IV,THRICE WEEKLY) GIVEN TWICE DAILY EVERY 3 WEEKS
     Route: 042
     Dates: start: 20111207
  2. IFOSFAMIDE [Suspect]
     Indication: NEOPLASM MALIGNANT
     Dosage: 3900 MG,EVERY3WEEKS(IV,THRICE WEEKLY)GIVEN TWICE DAILY ONCE EVERY3WEEKS,LAST DOSE PRIORSAE 17MAY2012
     Route: 042
     Dates: start: 20111207
  3. LYOVAC-COSMEGEN [Suspect]
     Indication: NEOPLASM MALIGNANT
     Dosage: 1.95 MG, EVERY 3 WEEKS (THRICE WEEKLY IV BOLUS), LAST DOSE PRIOR TO SAE: 16MAY2012
     Route: 040
     Dates: start: 20111207
  4. BEVACIZUMAB [Suspect]
     Indication: NEOPLASM MALIGNANT
     Dosage: 345 MG, EVERY 3 WEEKS (THRICE WEEKLY, IV)
     Route: 042
     Dates: start: 20111207
  5. VINCRISTINE [Suspect]
     Indication: NEOPLASM MALIGNANT
     Dosage: 2 MG, EVERY 3 WEEKS (IV BOLUS, THRICE WEEKLY), LAST DOSE PRIOR TO SAE: 16MAY2012
     Route: 040
     Dates: start: 20111207
  6. FENTANYL [Concomitant]
     Dosage: 25 UG, 1X/DAY (25 UG/HR)
     Dates: start: 20111204
  7. FENTANYL [Concomitant]
     Dosage: 37 UG, UNK (37 UG/HR)
     Dates: start: 20111207
  8. ONDANSETRON [Concomitant]
     Dosage: 24 MG, UNK
     Dates: start: 20111207
  9. METOCLOPRAMIDE [Concomitant]
     Dosage: 15 MG, UNK
     Dates: start: 20120104
  10. METOCLOPRAMIDE [Concomitant]
     Dosage: 24 MG, UNK
     Dates: start: 20120330
  11. LEVEMIR [Concomitant]
  12. CLOTRIMAZOLE [Concomitant]
     Dosage: 480 MG, UNK
     Route: 061
     Dates: start: 20120104
  13. CLOTRIMAZOLE [Concomitant]
     Dosage: 480 MG, UNK
     Dates: start: 20120121
  14. GELCLAIR [Concomitant]
     Dosage: UNK
     Dates: start: 20120104
  15. NOVORAPID [Concomitant]
     Dosage: UNK, AS NEEDED (AS REQUIRED)
  16. ORAMORPH [Concomitant]
     Dosage: 10 MG; 30 MG, UNK
     Dates: start: 20120105
  17. CO-TRIMOXAZOLE [Concomitant]
     Dosage: 480 MG, UNK
     Dates: start: 20111207
  18. OXYBUTYNIN [Concomitant]
     Dosage: 15 MG, UNK
     Dates: start: 20120321
  19. LANSOPRAZOLE [Concomitant]
     Dosage: 15 MG, UNK
     Dates: start: 20120418

REACTIONS (2)
  - Clostridium difficile colitis [Recovered/Resolved]
  - Febrile neutropenia [Unknown]
